FAERS Safety Report 23631914 (Version 1)
Quarter: 2024Q1

REPORT INFORMATION
  Report Type: Spontaneous
  Country: GB (occurrence: None)
  Receive Date: 20240314
  Receipt Date: 20240314
  Transmission Date: 20240409
  Serious: Yes (Other)
  Sender: FDA-Public Use
  Company Number: 2024A058971

PATIENT
  Sex: Male

DRUGS (1)
  1. DAPAGLIFLOZIN [Suspect]
     Active Substance: DAPAGLIFLOZIN
     Indication: Diabetic nephropathy
     Dosage: 10MG;
     Route: 048
     Dates: start: 20231127

REACTIONS (1)
  - Hepatotoxicity [Not Recovered/Not Resolved]

NARRATIVE: CASE EVENT DATE: 20231127
